FAERS Safety Report 5449543-2 (Version None)
Quarter: 2007Q3

REPORT INFORMATION
  Report Type: 
  Country: None (occurrence: None)
  Receive Date: 20070907
  Receipt Date: 20070827
  Transmission Date: 20080115
  Serious: Yes (Other)
  Sender: FDA-Public Use
  Company Number: OSCN-PR-0708L-0338

PATIENT

DRUGS (1)
  1. OMNISCAN [Suspect]
     Indication: DRUG USE FOR UNKNOWN INDICATION

REACTIONS (7)
  - BLOOD IRON INCREASED [None]
  - INFLAMMATION [None]
  - IRON BINDING CAPACITY TOTAL DECREASED [None]
  - NEPHROGENIC SYSTEMIC FIBROSIS [None]
  - RENAL INJURY [None]
  - SERUM FERRITIN INCREASED [None]
  - TRANSFERRIN SATURATION INCREASED [None]
